FAERS Safety Report 4677133-8 (Version None)
Quarter: 2005Q2

REPORT INFORMATION
  Report Type: 
  Country: None (occurrence: None)
  Receive Date: 20050526
  Receipt Date: 20050526
  Transmission Date: 20051028
  Serious: Yes (Disabling, Other)
  Sender: FDA-Public Use
  Company Number: None

PATIENT
  Sex: Male
  Weight: 10.2 kg

DRUGS (4)
  1. CARBOPLATIN [Suspect]
     Indication: RETINOBLASTOMA
     Dosage: 20MG  X1  SUBTENON
     Dates: start: 20050120
  2. CARBOPLATIN [Concomitant]
  3. ETOPOSIDE [Concomitant]
  4. VINCRISTINE [Concomitant]

REACTIONS (5)
  - BLINDNESS UNILATERAL [None]
  - EYE OPERATION COMPLICATION [None]
  - EYE SWELLING [None]
  - OPTIC ATROPHY [None]
  - VISUAL EVOKED POTENTIALS ABNORMAL [None]
